FAERS Safety Report 9165613 (Version 1)
Quarter: 2013Q1

REPORT INFORMATION
  Report Type: Spontaneous
  Country: US (occurrence: US)
  Receive Date: 20130315
  Receipt Date: 20130315
  Transmission Date: 20140127
  Serious: Yes (Other)
  Sender: FDA-Public Use
  Company Number: PHEH2013US005826

PATIENT
  Sex: Female

DRUGS (2)
  1. ILARIS [Suspect]
     Dosage: 48 MG, UNK
  2. ILARIS [Suspect]
     Dosage: EVERY 4 WEEKS

REACTIONS (9)
  - Deafness [Unknown]
  - Otitis media [Unknown]
  - Ear infection [Unknown]
  - Arthralgia [Unknown]
  - Pyrexia [Unknown]
  - Urticaria [Unknown]
  - Headache [Unknown]
  - Sinusitis [Unknown]
  - Dizziness [Unknown]
